FAERS Safety Report 7647631-3 (Version None)
Quarter: 2011Q3

REPORT INFORMATION
  Report Type: 
  Country: None (occurrence: None)
  Receive Date: 20110801
  Receipt Date: 20110801
  Transmission Date: 20111222
  Serious: Yes (Life-Threatening, Hospitalization)
  Sender: FDA-Public Use
  Company Number: None

PATIENT
  Age: 15 Year
  Sex: Male
  Weight: 81.646 kg

DRUGS (1)
  1. NAPROXEN (ALEVE) [Suspect]
     Indication: JOINT SWELLING
     Dosage: 220MG
     Route: 048
     Dates: start: 20110612, end: 20110617

REACTIONS (4)
  - PYREXIA [None]
  - GASTROINTESTINAL ULCER HAEMORRHAGE [None]
  - HAEMOGLOBIN DECREASED [None]
  - BLOOD COUNT ABNORMAL [None]
